FAERS Safety Report 10535289 (Version 1)
Quarter: 2014Q4

REPORT INFORMATION
  Report Type: Spontaneous
  Country: US (occurrence: US)
  Receive Date: 20141022
  Receipt Date: 20141022
  Transmission Date: 20150529
  Serious: Yes (Hospitalization, Other)
  Sender: FDA-Public Use
  Company Number: US-GLAXOSMITHKLINE-US2014005317

PATIENT
  Age: 80 Year
  Sex: Female

DRUGS (4)
  1. THYROID MEDICATION [Concomitant]
     Active Substance: UNSPECIFIED INGREDIENT
  2. ADVAIR DISKUS [Suspect]
     Active Substance: FLUTICASONE PROPIONATE\SALMETEROL XINAFOATE
     Indication: CHRONIC OBSTRUCTIVE PULMONARY DISEASE
     Dosage: 1 PUFF(S), BID
     Route: 055
     Dates: start: 1999
  3. LASIX [Concomitant]
     Active Substance: FUROSEMIDE
  4. PROZAC [Concomitant]
     Active Substance: FLUOXETINE HYDROCHLORIDE

REACTIONS (13)
  - Peripheral coldness [Recovered/Resolved]
  - Sensation of foreign body [Not Recovered/Not Resolved]
  - Cystitis [Recovered/Resolved]
  - Cardiac disorder [Unknown]
  - Orthosis user [Not Recovered/Not Resolved]
  - Thrombosis [Unknown]
  - Amnesia [Not Recovered/Not Resolved]
  - White blood cell count increased [Not Recovered/Not Resolved]
  - Pain in extremity [Recovered/Resolved]
  - Dehydration [Recovered/Resolved]
  - Non-Hodgkin^s lymphoma recurrent [Not Recovered/Not Resolved]
  - Peroneal nerve palsy [Not Recovered/Not Resolved]
  - Skin mass [Not Recovered/Not Resolved]

NARRATIVE: CASE EVENT DATE: 20131108
